FAERS Safety Report 8435979-4 (Version None)
Quarter: 2012Q2

REPORT INFORMATION
  Report Type: 
  Country: None (occurrence: None)
  Receive Date: 20120614
  Receipt Date: 20120530
  Transmission Date: 20120825
  Serious: Yes (Hospitalization, Other)
  Sender: FDA-Public Use
  Company Number: JP-WATSON-2012-09559

PATIENT
  Age: 75 Year
  Sex: Male

DRUGS (1)
  1. RAPAFLO [Suspect]
     Indication: DYSURIA
     Dosage: 2 MG, BID
     Route: 048
     Dates: start: 20120515, end: 20120518

REACTIONS (2)
  - MOUTH HAEMORRHAGE [None]
  - THROMBOCYTOPENIA [None]
